FAERS Safety Report 10353707 (Version 1)
Quarter: 2014Q3

REPORT INFORMATION
  Report Type: Spontaneous
  Country: US (occurrence: US)
  Receive Date: 20140731
  Receipt Date: 20140731
  Transmission Date: 20150326
  Serious: No
  Sender: FDA-Public Use
  Company Number: US-009507513-1407USA012123

PATIENT

DRUGS (1)
  1. REMERON [Suspect]
     Active Substance: MIRTAZAPINE
     Dosage: UNK
     Route: 048
     Dates: start: 2010

REACTIONS (4)
  - Optic nerve disorder [Unknown]
  - Intraocular pressure increased [Unknown]
  - Vision blurred [Unknown]
  - Glaucoma [Unknown]
